FAERS Safety Report 9910638 (Version 2)
Quarter: 2014Q1

REPORT INFORMATION
  Report Type: Spontaneous
  Country: US (occurrence: US)
  Receive Date: 20140219
  Receipt Date: 20140219
  Transmission Date: 20141002
  Serious: No
  Sender: FDA-Public Use
  Company Number: US-GILEAD-2012-0051754

PATIENT
  Sex: Female

DRUGS (2)
  1. LETAIRIS [Suspect]
     Indication: PULMONARY HYPERTENSION
     Dosage: 10 MG, UNK
     Route: 048
     Dates: start: 20090408
  2. ADCIRCA [Concomitant]

REACTIONS (4)
  - Pain in extremity [Unknown]
  - Exostosis [Unknown]
  - Pain [Unknown]
  - Exostosis [Unknown]
